FAERS Safety Report 13168834 (Version 1)
Quarter: 2017Q1

REPORT INFORMATION
  Report Type: Spontaneous
  Country: PL (occurrence: PL)
  Receive Date: 20170131
  Receipt Date: 20170131
  Transmission Date: 20170428
  Serious: Yes (Other)
  Sender: FDA-Public Use
  Company Number: PL-ROCHE-1885386

PATIENT
  Age: 34 Year
  Sex: Male
  Weight: 88 kg

DRUGS (1)
  1. PEGASYS [Suspect]
     Active Substance: PEGINTERFERON ALFA-2A
     Indication: CHRONIC HEPATITIS B
     Route: 058
     Dates: start: 20131130, end: 20140102

REACTIONS (3)
  - Alanine aminotransferase increased [Recovered/Resolved]
  - Hepatic fibrosis [Unknown]
  - Biopsy liver abnormal [Unknown]

NARRATIVE: CASE EVENT DATE: 20131227
